FAERS Safety Report 4818586-1 (Version None)
Quarter: 2005Q4

REPORT INFORMATION
  Report Type: 
  Country: None (occurrence: None)
  Receive Date: 20051027
  Receipt Date: 20051017
  Transmission Date: 20060501
  Serious: Yes (Death)
  Sender: FDA-Public Use
  Company Number: OXYA20050005

PATIENT
  Age: 46 Year
  Sex: Male
  Weight: 58.0604 kg

DRUGS (5)
  1. OXYCODONE AND ACETAMINOPHEN [Suspect]
     Dates: end: 20040619
  2. DIAZEPAM [Concomitant]
  3. ELAVIL [Concomitant]
  4. LOMOTIL [Concomitant]
  5. SULINDAC [Concomitant]

REACTIONS (16)
  - ACCIDENTAL DEATH [None]
  - AORTIC ARTERIOSCLEROSIS [None]
  - CONTUSION [None]
  - CORONARY ARTERY STENOSIS [None]
  - DRUG ABUSER [None]
  - DRUG TOXICITY [None]
  - EPISTAXIS [None]
  - EXCORIATION [None]
  - HAEMATEMESIS [None]
  - HAEMORRHAGE [None]
  - LUNG DISORDER [None]
  - MITRAL VALVE DISEASE [None]
  - OCULAR ICTERUS [None]
  - PERITONEAL ADHESIONS [None]
  - PLEURAL ADHESION [None]
  - PROSTATE EXAMINATION ABNORMAL [None]
